FAERS Safety Report 8868198 (Version 1)
Quarter: 2012Q4

REPORT INFORMATION
  Report Type: 
  Country: US (occurrence: US)
  Receive Date: 20121025
  Receipt Date: 20121025
  Transmission Date: 20130627
  Serious: No
  Sender: FDA-Public Use
  Company Number: US-AMGEN-USASP2012019484

PATIENT
  Age: 36 Year
  Sex: Male
  Weight: 111 kg

DRUGS (6)
  1. ENBREL [Suspect]
     Indication: PRODUCT USED FOR UNKNOWN INDICATION
     Dosage: 50 mg, qwk
     Route: 058
  2. MULTIVITAMINS [Concomitant]
     Dosage: UNK
  3. INDOMETHACIN                       /00003801/ [Concomitant]
     Dosage: 25 mg, UNK
  4. METFORMIN [Concomitant]
     Dosage: 500 mg, UNK
  5. TRAMADOL [Concomitant]
     Dosage: 100 mg, UNK
  6. HYDROCHLOROTHIAZIDE [Concomitant]
     Dosage: 12.5 mg, UNK

REACTIONS (3)
  - Injection site reaction [Unknown]
  - Injection site swelling [Unknown]
  - Injection site pain [Unknown]
